FAERS Safety Report 13023766 (Version 1)
Quarter: 2016Q4

REPORT INFORMATION
  Report Type: Spontaneous
  Country: US (occurrence: US)
  Receive Date: 20161213
  Receipt Date: 20161213
  Transmission Date: 20170207
  Serious: No
  Sender: FDA-Public Use
  Company Number: None

PATIENT
  Age: 45 Year
  Sex: Male
  Weight: 92.3 kg

DRUGS (1)
  1. BUPROPION. [Suspect]
     Active Substance: BUPROPION
     Indication: POST-TRAUMATIC STRESS DISORDER
     Route: 048
     Dates: start: 20160919, end: 20161018

REACTIONS (1)
  - Seizure [None]

NARRATIVE: CASE EVENT DATE: 20161018
